FAERS Safety Report 6024173-2 (Version None)
Quarter: 2008Q4

REPORT INFORMATION
  Report Type: 
  Country: None (occurrence: None)
  Receive Date: 20081224
  Receipt Date: 20081222
  Transmission Date: 20090506
  Serious: Yes (Other)
  Sender: FDA-Public Use
  Company Number: THQ2008A02209

PATIENT
  Age: 64 Year
  Sex: Male

DRUGS (5)
  1. LANSOPRAZOLE [Suspect]
     Indication: HIATUS HERNIA
     Dosage: UP TO 20 MG DAILY (SPORADICALLY) (1 D) PER ORAL; 30 MG (30 MG, 1 IN 1 D) PER ORAL
     Route: 048
     Dates: start: 20081021, end: 20081103
  2. LANSOPRAZOLE [Suspect]
     Indication: HIATUS HERNIA
     Dosage: UP TO 20 MG DAILY (SPORADICALLY) (1 D) PER ORAL; 30 MG (30 MG, 1 IN 1 D) PER ORAL
     Route: 048
     Dates: start: 20021028
  3. LANSOPRAZOLE [Suspect]
     Indication: HIATUS HERNIA
     Dosage: UP TO 20 MG DAILY (SPORADICALLY) (1 D) PER ORAL; 30 MG (30 MG, 1 IN 1 D) PER ORAL
     Route: 048
     Dates: start: 20081105
  4. OMEPRAZOLE [Concomitant]
  5. CITALOPRAM HYDROBROMIDE [Concomitant]

REACTIONS (20)
  - ABNORMAL FAECES [None]
  - ARTHRALGIA [None]
  - BURNING SENSATION [None]
  - COLITIS [None]
  - CONSTIPATION [None]
  - DIARRHOEA [None]
  - DIVERTICULITIS [None]
  - DIZZINESS [None]
  - DRUG WITHDRAWAL SYNDROME [None]
  - DRY MOUTH [None]
  - FATIGUE [None]
  - FORMICATION [None]
  - HYPERHIDROSIS [None]
  - INCORRECT DOSE ADMINISTERED [None]
  - MYALGIA [None]
  - PAIN [None]
  - PARAESTHESIA [None]
  - PROSTATE CANCER [None]
  - SUNBURN [None]
  - THROAT IRRITATION [None]
